FAERS Safety Report 17180199 (Version 1)
Quarter: 2019Q4

REPORT INFORMATION
  Report Type: Spontaneous
  Country: CN (occurrence: CN)
  Receive Date: 20191219
  Receipt Date: 20191219
  Transmission Date: 20200122
  Serious: Yes (Hospitalization)
  Sender: FDA-Public Use
  Company Number: CN-PFIZER INC-2019541743

PATIENT
  Age: 61 Year
  Sex: Male
  Weight: 71.3 kg

DRUGS (1)
  1. LIPITOR [Suspect]
     Active Substance: ATORVASTATIN CALCIUM
     Indication: LIPIDS ABNORMAL
     Dosage: 20 MG, 1X/DAY
     Route: 048
     Dates: start: 20191115, end: 20191204

REACTIONS (2)
  - Rash [Recovering/Resolving]
  - Rubella [Recovering/Resolving]

NARRATIVE: CASE EVENT DATE: 20191201
